FAERS Safety Report 8437978-5 (Version None)
Quarter: 2012Q2

REPORT INFORMATION
  Report Type: 
  Country: None (occurrence: None)
  Receive Date: 20120614
  Receipt Date: 20120530
  Transmission Date: 20120825
  Serious: No
  Sender: FDA-Public Use
  Company Number: US-AMGEN-USASP2012018729

PATIENT
  Age: 93 Year
  Sex: Female
  Weight: 33 kg

DRUGS (8)
  1. CALCIUM LACTATE [Concomitant]
     Dosage: 600 MG, QD
  2. LATANOPROST ACTAVIS [Concomitant]
     Indication: GLAUCOMA
     Dosage: UNK
  3. ACETAMINOPHEN [Concomitant]
     Dosage: 3 MG, QD
  4. LEVOTHYROXINE SODIUM [Concomitant]
     Dosage: 1 MUG, QD
  5. PROLIA [Suspect]
     Indication: OSTEOPOROSIS POSTMENOPAUSAL
     Dosage: 60 MG, Q6MO
     Dates: start: 20110922
  6. VITAMIN D [Concomitant]
     Indication: VITAMIN D DEFICIENCY
     Dosage: 10000 IU, QD
  7. STRONTIUM CARBONAS [Concomitant]
  8. LEVOTHYROXINE SODIUM [Concomitant]
     Indication: HYPOTHYROIDISM
     Dosage: 70 MUG, QD

REACTIONS (1)
  - ARTHRALGIA [None]
